FAERS Safety Report 16877970 (Version 2)
Quarter: 2019Q4

REPORT INFORMATION
  Report Type: Report from Study
  Country: US (occurrence: US)
  Receive Date: 20191002
  Receipt Date: 20191119
  Transmission Date: 20200122
  Serious: No
  Sender: FDA-Public Use
  Company Number: US-ALNYLAM PHARMACEUTICALS, INC.-ALN-2019-000732

PATIENT
  Sex: Male

DRUGS (2)
  1. ONPATTRO [Suspect]
     Active Substance: PATISIRAN SODIUM
     Indication: HEREDITARY NEUROPATHIC AMYLOIDOSIS
     Dosage: UNK
     Route: 042
     Dates: start: 20190919
  2. DIPHENHYDRAMINE. [Suspect]
     Active Substance: DIPHENHYDRAMINE
     Indication: PROPHYLAXIS

REACTIONS (7)
  - Agitation [Unknown]
  - Feeling hot [Unknown]
  - Condition aggravated [Unknown]
  - Diarrhoea [Not Recovered/Not Resolved]
  - Peripheral swelling [Unknown]
  - Paraesthesia [Unknown]
  - Constipation [Not Recovered/Not Resolved]
